FAERS Safety Report 11539064 (Version 4)
Quarter: 2015Q4

REPORT INFORMATION
  Report Type: Report from Study
  Country: FR (occurrence: FR)
  Receive Date: 20150923
  Receipt Date: 20151215
  Transmission Date: 20160304
  Serious: Yes (Other)
  Sender: FDA-Public Use
  Company Number: FR-BRISTOL-MYERS SQUIBB COMPANY-BMS-2015-062666

PATIENT
  Age: 65 Year
  Sex: Female
  Weight: 46 kg

DRUGS (4)
  1. NIVOLUMAB [Suspect]
     Active Substance: NIVOLUMAB
     Indication: PRODUCT USED FOR UNKNOWN INDICATION
     Dosage: 3 MG/KG
     Route: 065
     Dates: start: 20150825, end: 20150908
  2. NIVOLUMAB [Suspect]
     Active Substance: NIVOLUMAB
     Dosage: 3 MG/KG, UNK
     Route: 065
     Dates: start: 20150922
  3. NIVOLUMAB [Suspect]
     Active Substance: NIVOLUMAB
     Dosage: 3 MG/KG, UNK
     Route: 065
     Dates: start: 20151006
  4. NIVOLUMAB [Suspect]
     Active Substance: NIVOLUMAB
     Dosage: 3 MG/KG, UNK
     Route: 065
     Dates: start: 20151020

REACTIONS (13)
  - Malignant neoplasm progression [Not Recovered/Not Resolved]
  - Lymphocyte count abnormal [Unknown]
  - Blood electrolytes abnormal [Unknown]
  - Asthenia [Recovered/Resolved]
  - Diarrhoea [Recovered/Resolved]
  - Blood alkaline phosphatase abnormal [Unknown]
  - Neutrophil count abnormal [Unknown]
  - Dyspnoea [Recovered/Resolved]
  - Haemoglobin abnormal [Unknown]
  - White blood cell count increased [Unknown]
  - Aspartate aminotransferase abnormal [Unknown]
  - Platelet disorder [Unknown]
  - Pyrexia [Recovered/Resolved]

NARRATIVE: CASE EVENT DATE: 20150905
